FAERS Safety Report 8991920 (Version 3)
Quarter: 2013Q1

REPORT INFORMATION
  Report Type: Spontaneous
  Country: JP (occurrence: JP)
  Receive Date: 20121231
  Receipt Date: 20130318
  Transmission Date: 20140127
  Serious: Yes (Other)
  Sender: FDA-Public Use
  Company Number: JP-UCBSA-073784

PATIENT
  Age: 12 Month
  Sex: Female
  Weight: 7.68 kg

DRUGS (23)
  1. E KEPPRA [Suspect]
     Indication: PARTIAL SEIZURES
     Route: 048
     Dates: start: 20120409, end: 20120422
  2. E KEPPRA [Suspect]
     Indication: EPILEPSY
     Route: 048
     Dates: start: 20120409, end: 20120422
  3. E KEPPRA [Suspect]
     Indication: PARTIAL SEIZURES
     Dosage: DAILY DOSE: 140 MG
     Route: 048
     Dates: start: 20120423, end: 20120506
  4. E KEPPRA [Suspect]
     Indication: EPILEPSY
     Dosage: DAILY DOSE: 140 MG
     Route: 048
     Dates: start: 20120423, end: 20120506
  5. E KEPPRA [Suspect]
     Indication: PARTIAL SEIZURES
     Dosage: DAILY DOSE: 210MG
     Route: 048
     Dates: start: 20120507, end: 20120603
  6. E KEPPRA [Suspect]
     Indication: EPILEPSY
     Dosage: DAILY DOSE: 210MG
     Route: 048
     Dates: start: 20120507, end: 20120603
  7. E KEPPRA [Suspect]
     Indication: PARTIAL SEIZURES
     Dosage: DAILY DOSE: 230 MG
     Route: 048
     Dates: start: 20120604, end: 20120617
  8. E KEPPRA [Suspect]
     Indication: EPILEPSY
     Dosage: DAILY DOSE: 230 MG
     Route: 048
     Dates: start: 20120604, end: 20120617
  9. E KEPPRA [Suspect]
     Indication: PARTIAL SEIZURES
     Dosage: DAILY DOSE: 300 MG
     Route: 048
     Dates: start: 20120618, end: 20120701
  10. E KEPPRA [Suspect]
     Indication: EPILEPSY
     Dosage: DAILY DOSE: 300 MG
     Route: 048
     Dates: start: 20120618, end: 20120701
  11. E KEPPRA [Suspect]
     Indication: PARTIAL SEIZURES
     Dosage: DAILY DOSE: 380 MG
     Route: 048
     Dates: start: 20120702, end: 20120812
  12. E KEPPRA [Suspect]
     Indication: EPILEPSY
     Dosage: DAILY DOSE: 380 MG
     Route: 048
     Dates: start: 20120702, end: 20120812
  13. E KEPPRA [Suspect]
     Indication: PARTIAL SEIZURES
     Dosage: DAILY DOE: 400 MG
     Route: 048
     Dates: start: 20120813, end: 20121104
  14. E KEPPRA [Suspect]
     Indication: EPILEPSY
     Dosage: DAILY DOE: 400 MG
     Route: 048
     Dates: start: 20120813, end: 20121104
  15. E KEPPRA [Suspect]
     Indication: PARTIAL SEIZURES
     Dosage: DAILY DOSE: 410 MG
     Route: 048
     Dates: start: 20121105, end: 20121219
  16. E KEPPRA [Suspect]
     Indication: EPILEPSY
     Dosage: DAILY DOSE: 410 MG
     Route: 048
     Dates: start: 20121105, end: 20121219
  17. E KEPPRA [Suspect]
     Indication: PARTIAL SEIZURES
     Dosage: DAILY DOSE: 390 MG
     Route: 048
     Dates: start: 20121220
  18. E KEPPRA [Suspect]
     Indication: EPILEPSY
     Dosage: DAILY DOSE: 390 MG
     Route: 048
     Dates: start: 20121220
  19. PHENOBAL [Suspect]
     Indication: EPILEPSY
     Dosage: DAILY DOSE: 5 ML
     Route: 048
     Dates: start: 20120209, end: 20120226
  20. PHENOBAL [Suspect]
     Indication: EPILEPSY
     Dosage: DAILY DOSE: 6 ML
     Route: 048
     Dates: start: 20120227, end: 20120304
  21. PHENOBAL [Suspect]
     Indication: EPILEPSY
     Dosage: DAILY DOSE: 30 MG
     Route: 048
     Dates: start: 20120305, end: 20120318
  22. PHENOBAL [Suspect]
     Indication: EPILEPSY
     Dosage: DAILY DOSE: 35 MG
     Route: 048
     Dates: start: 20120319, end: 20120325
  23. PHENOBAL [Suspect]
     Indication: EPILEPSY
     Dosage: DAILY DOSE: 40 MG
     Route: 048
     Dates: start: 20120326

REACTIONS (1)
  - Retinal degeneration [Not Recovered/Not Resolved]
